FAERS Safety Report 20750936 (Version 2)
Quarter: 2022Q2

REPORT INFORMATION
  Report Type: Spontaneous
  Country: FR (occurrence: FR)
  Receive Date: 20220426
  Receipt Date: 20220510
  Transmission Date: 20220721
  Serious: No
  Sender: FDA-Public Use
  Company Number: FR-PERRIGO-22FR005788

PATIENT

DRUGS (1)
  1. NIQUITIN [Suspect]
     Active Substance: NICOTINE
     Indication: Smoking cessation therapy
     Dosage: 2 TO 3 TABLETS PER DAY
     Route: 065
     Dates: start: 2016

REACTIONS (1)
  - Nicotine dependence [Not Recovered/Not Resolved]
